FAERS Safety Report 5628966-2 (Version None)
Quarter: 2008Q1

REPORT INFORMATION
  Report Type: 
  Country: None (occurrence: None)
  Receive Date: 20080214
  Receipt Date: 20080131
  Transmission Date: 20080703
  Serious: Yes (Other)
  Sender: FDA-Public Use
  Company Number: 2008AL000578

PATIENT
  Age: 57 Year
  Sex: Female

DRUGS (1)
  1. SERTRALINE HCL [Suspect]
     Indication: DEPRESSION
     Dosage: 25 MG,QD,PO
     Route: 048

REACTIONS (12)
  - BLADDER SPASM [None]
  - CONSTIPATION [None]
  - DYSPAREUNIA [None]
  - DYSURIA [None]
  - GASTROINTESTINAL DISORDER [None]
  - MUSCLE TIGHTNESS [None]
  - NOCTURIA [None]
  - PAIN [None]
  - PELVIC PAIN [None]
  - TENDERNESS [None]
  - URINARY HESITATION [None]
  - URINARY RETENTION [None]
